FAERS Safety Report 5403269-X (Version None)
Quarter: 2007Q3

REPORT INFORMATION
  Report Type: 
  Country: None (occurrence: None)
  Receive Date: 20070801
  Receipt Date: 20070720
  Transmission Date: 20080115
  Serious: Yes (Other)
  Sender: FDA-Public Use
  Company Number: MY-PFIZER INC-2007060514

PATIENT
  Age: 9 Year
  Sex: Male
  Weight: 32.5 kg

DRUGS (1)
  1. SULPERAZON [Suspect]
     Indication: PROPHYLAXIS
     Route: 042
     Dates: start: 20070720, end: 20070721

REACTIONS (1)
  - CONVULSION [None]
